FAERS Safety Report 15737520 (Version 1)
Quarter: 2018Q4

REPORT INFORMATION
  Report Type: Spontaneous
  Country: SE (occurrence: SE)
  Receive Date: 20181219
  Receipt Date: 20181219
  Transmission Date: 20190205
  Serious: Yes (Other)
  Sender: FDA-Public Use
  Company Number: PHHY2018SE188938

PATIENT
  Age: 53 Year
  Sex: Female

DRUGS (1)
  1. ATORBIR [Suspect]
     Active Substance: ATORVASTATIN
     Indication: LIPIDS INCREASED
     Dosage: 20 MG, QD
     Route: 048
     Dates: start: 20180911

REACTIONS (5)
  - Cognitive disorder [Recovered/Resolved]
  - Hypoaesthesia [Recovered/Resolved]
  - Vaginal haemorrhage [Recovered/Resolved]
  - Feeling cold [Recovered/Resolved]
  - Asthenia [Recovered/Resolved]

NARRATIVE: CASE EVENT DATE: 2018
